FAERS Safety Report 5980160-1 (Version None)
Quarter: 2008Q4

REPORT INFORMATION
  Report Type: 
  Country: None (occurrence: None)
  Receive Date: 20081205
  Receipt Date: 20081104
  Transmission Date: 20090506
  Serious: No
  Sender: FDA-Public Use
  Company Number: US-BAYER-200838036NA

PATIENT
  Age: 17 Year
  Sex: Female
  Weight: 59 kg

DRUGS (2)
  1. OCELLA [Suspect]
     Indication: ACNE
     Route: 048
     Dates: start: 20081001
  2. DULAC [Concomitant]
     Indication: ACNE

REACTIONS (1)
  - ACNE [None]
